FAERS Safety Report 4271631-7 (Version None)
Quarter: 2004Q1

REPORT INFORMATION
  Report Type: 
  Country: None (occurrence: None)
  Receive Date: 20040113
  Receipt Date: 20000522
  Transmission Date: 20041129
  Serious: No
  Sender: FDA-Public Use
  Company Number: 7028

PATIENT
  Age: 65 Year
  Sex: 0

DRUGS (8)
  1. DOXYCYCLINE [Suspect]
     Indication: ORCHITIS
     Dosage: 100 MG FREQ UNK
     Route: 048
     Dates: start: 20000407, end: 20000430
  2. WARFARIN SODIUM [Concomitant]
  3. PERINDOPRIL [Concomitant]
  4. DIGOXIN [Concomitant]
  5. FUROSEMIDE [Concomitant]
  6. SIMVASTATIN [Concomitant]
  7. ACETAMINOPHEN [Concomitant]
  8. ASPIRIN [Concomitant]

REACTIONS (1)
  - OPTIC NEURITIS RETROBULBAR [None]
